FAERS Safety Report 7530531-7 (Version None)
Quarter: 2011Q2

REPORT INFORMATION
  Report Type: 
  Country: None (occurrence: None)
  Receive Date: 20110607
  Receipt Date: 20110603
  Transmission Date: 20111010
  Serious: Yes (Hospitalization)
  Sender: FDA-Public Use
  Company Number: US-CEPHALON-2011002843

PATIENT
  Sex: Male
  Weight: 107 kg

DRUGS (7)
  1. FERROUS SULFATE TAB [Concomitant]
  2. LOSARTAN POTASSIUM [Concomitant]
  3. AMLODIPINE [Concomitant]
  4. TYLENOL-500 [Concomitant]
  5. OMEPRAZOLE [Concomitant]
  6. TERAZOSIN [Concomitant]
  7. TREANDA [Suspect]
     Indication: B-CELL LYMPHOMA
     Route: 041
     Dates: start: 20110124

REACTIONS (3)
  - PYREXIA [None]
  - HAEMATOCHEZIA [None]
  - CHILLS [None]
